FAERS Safety Report 7399381-9 (Version None)
Quarter: 2011Q1

REPORT INFORMATION
  Report Type: 
  Country: None (occurrence: None)
  Receive Date: 20110328
  Receipt Date: 20110314
  Transmission Date: 20110831
  Serious: Yes (Hospitalization)
  Sender: FDA-Public Use
  Company Number: 2011SP011265

PATIENT
  Sex: Male
  Weight: 85 kg

DRUGS (3)
  1. PEG-INTRON [Suspect]
     Indication: HEPATITIS C
     Dosage: 120 MCG; QD; SC
     Route: 058
     Dates: start: 20100105, end: 20100423
  2. REBETOL [Suspect]
     Indication: HEPATITIS C
     Dosage: 200 MG; Q12H; PO
     Route: 048
     Dates: start: 20100105, end: 20100423
  3. METADON /00068901/ [Concomitant]

REACTIONS (4)
  - CONFUSIONAL STATE [None]
  - DISORIENTATION [None]
  - PERSONALITY CHANGE [None]
  - FATIGUE [None]
